FAERS Safety Report 17868643 (Version 1)
Quarter: 2020Q2

REPORT INFORMATION
  Report Type: Report from Study
  Country: AU (occurrence: AU)
  Receive Date: 20200606
  Receipt Date: 20200606
  Transmission Date: 20200714
  Serious: Yes (Other)
  Sender: FDA-Public Use
  Company Number: NVSC2020AU156957

PATIENT
  Age: 1 Year
  Sex: Female
  Weight: 11.1 kg

DRUGS (4)
  1. ONASEMNOGENE ABEPARVOVEC [Suspect]
     Active Substance: ONASEMNOGENE ABEPARVOVEC
     Indication: SPINAL MUSCULAR ATROPHY
     Dosage: 63.3 ML
     Route: 042
     Dates: start: 20200526
  2. PREDNISOLONE. [Concomitant]
     Active Substance: PREDNISOLONE
     Indication: PROPHYLAXIS
     Dosage: 11 MG, QD
     Route: 065
     Dates: start: 20200525
  3. OSMOLAX [Concomitant]
     Indication: CONSTIPATION
     Dosage: UNK
     Route: 065
     Dates: end: 20200602
  4. LOSEC [Concomitant]
     Active Substance: OMEPRAZOLE
     Indication: STEROID THERAPY
     Dosage: 10 MG, QD
     Route: 065
     Dates: start: 20200525, end: 20200602

REACTIONS (12)
  - Thrombocytopenia [Not Recovered/Not Resolved]
  - Monocyte count increased [Unknown]
  - Activated partial thromboplastin time shortened [Unknown]
  - Blood urea decreased [Unknown]
  - Troponin T increased [Unknown]
  - Lymphocyte count increased [Unknown]
  - Mean cell haemoglobin concentration decreased [Unknown]
  - Lymphocyte count decreased [Unknown]
  - Mean platelet volume decreased [Unknown]
  - Basophil count increased [Unknown]
  - Haematocrit increased [Unknown]
  - Transaminases increased [Not Recovered/Not Resolved]

NARRATIVE: CASE EVENT DATE: 20200526
